FAERS Safety Report 9322141 (Version 2)
Quarter: 2013Q2

REPORT INFORMATION
  Report Type: Report from Study
  Country: US (occurrence: US)
  Receive Date: 20130531
  Receipt Date: 20130612
  Transmission Date: 20140414
  Serious: Yes (Hospitalization)
  Sender: FDA-Public Use
  Company Number: US-PFIZER INC-2013159745

PATIENT
  Age: 51 Year
  Sex: Male
  Weight: 54.83 kg

DRUGS (14)
  1. TORISEL [Suspect]
     Indication: HEPATOCELLULAR CARCINOMA
     Dosage: 25 MG, CYCLIC (DAY 1, 8, AND 15 EVERY 21 DAYS)
     Route: 042
     Dates: start: 20130404
  2. BENADRYL [Suspect]
     Indication: PREMEDICATION
     Dosage: 50 MG, DAY 1, 8, 15  EVERY 21 DAYS
     Route: 042
  3. AMLODIPINE BESILATE [Concomitant]
     Dosage: 5 MG, 1X/DAY
     Route: 048
     Dates: start: 20130507
  4. FOLIC ACID [Concomitant]
     Dosage: 1 MG, 2X/DAY
     Route: 048
     Dates: start: 201210
  5. MAGNESIUM OXIDE [Concomitant]
     Dosage: 400 MG, 2X/DAY
     Route: 048
     Dates: start: 20130509
  6. MEGESTROL ACETATE [Concomitant]
     Dosage: 800 MG, 1X/DAY
     Route: 048
     Dates: start: 20130516
  7. METOPROLOL SUCCINATE [Concomitant]
     Dosage: 25 MG, 1X/DAY
     Route: 048
     Dates: start: 201210
  8. MORPHINE [Concomitant]
     Indication: PAIN
     Dosage: 30 MG, AS NEEDED EVERY 4 HOURS
     Route: 048
     Dates: start: 20130404
  9. NYSTATIN [Concomitant]
     Dosage: 500000, 4X/DAY
     Route: 048
     Dates: start: 20130516
  10. OMEPRAZOLE [Concomitant]
     Dosage: 40 MG, 1X/DAY
     Route: 048
     Dates: start: 201210
  11. PROMETHAZINE [Concomitant]
     Indication: NAUSEA
     Dosage: 25 MG, EVERY 4-6 HOURS AS NEEDED
     Route: 048
     Dates: start: 20130404
  12. PROMETHAZINE [Concomitant]
     Indication: VOMITING
  13. VITAMIN B1 [Concomitant]
     Dosage: 250 MG, 1X/DAY
     Route: 048
     Dates: start: 201210
  14. DIPHENOXYLATE W/ATROPINE SULFATE [Concomitant]
     Indication: DIARRHOEA
     Dosage: 2 (2.5-0.0.25 MG), FOUR TIMES A DAY AS NEEDED
     Route: 048
     Dates: start: 20130425

REACTIONS (5)
  - Failure to thrive [Unknown]
  - Cachexia [Unknown]
  - Malnutrition [Unknown]
  - Dehydration [Unknown]
  - Renal failure acute [Unknown]
